FAERS Safety Report 23242548 (Version 1)
Quarter: 2023Q4

REPORT INFORMATION
  Report Type: Spontaneous
  Country: US (occurrence: None)
  Receive Date: 20231129
  Receipt Date: 20231129
  Transmission Date: 20240109
  Serious: Yes (unspecified)
  Sender: FDA-Public Use
  Company Number: None

PATIENT
  Age: 72 Year
  Sex: Male
  Weight: 115.65 kg

DRUGS (15)
  1. RANOLAZINE [Suspect]
     Active Substance: RANOLAZINE
     Indication: Chest pain
     Dosage: OTHER QUANTITY : 1 TABLET(S);?FREQUENCY : TWICE A DAY;?
     Route: 048
  2. ENTRESTO [Concomitant]
     Active Substance: SACUBITRIL\VALSARTAN
  3. ASPIRIN [Concomitant]
     Active Substance: ASPIRIN
  4. FUROSEMIDE [Concomitant]
     Active Substance: FUROSEMIDE
  5. ELIQUIS [Concomitant]
     Active Substance: APIXABAN
  6. METOPROLOL [Concomitant]
     Active Substance: METOPROLOL
  7. ICOSAPENT [Concomitant]
     Active Substance: ICOSAPENT
  8. VITAMIN D3 [Concomitant]
     Active Substance: CHOLECALCIFEROL
  9. VITAMINS [Concomitant]
     Active Substance: VITAMINS
  10. COENZYME Q10 [Concomitant]
     Active Substance: DIETARY SUPPLEMENT\UBIDECARENONE
  11. ZINC [Concomitant]
     Active Substance: PYRITHIONE ZINC\ZINC\ZINC CHLORIDE
  12. VITAMIN C [Concomitant]
     Active Substance: ASCORBIC ACID
  13. HERBALS\TURMERIC [Concomitant]
     Active Substance: HERBALS\TURMERIC
  14. VITAMIN B12 [Concomitant]
     Active Substance: CYANOCOBALAMIN
  15. METAMUCIL [Concomitant]
     Active Substance: PLANTAGO SEED

REACTIONS (1)
  - Constipation [None]

NARRATIVE: CASE EVENT DATE: 20211129
